FAERS Safety Report 7041065-0 (Version None)
Quarter: 2010Q4

REPORT INFORMATION
  Report Type: 
  Country: None (occurrence: None)
  Receive Date: 20101006
  Receipt Date: 20100930
  Transmission Date: 20110411
  Serious: Yes (Other)
  Sender: FDA-Public Use
  Company Number: 2010SP042070

PATIENT
  Age: 52 Year
  Sex: Male

DRUGS (14)
  1. MIRTAZAPINE [Suspect]
     Indication: DEPRESSION
     Dosage: 15 MG; QD; PO, 15 MG; QD; PO, 30 MG; QD; PO, 15 MG; QD; PO
     Route: 048
     Dates: start: 20091030, end: 20100104
  2. MIRTAZAPINE [Suspect]
     Indication: DEPRESSION
     Dosage: 15 MG; QD; PO, 15 MG; QD; PO, 30 MG; QD; PO, 15 MG; QD; PO
     Route: 048
     Dates: start: 20100105, end: 20100509
  3. MIRTAZAPINE [Suspect]
     Indication: DEPRESSION
     Dosage: 15 MG; QD; PO, 15 MG; QD; PO, 30 MG; QD; PO, 15 MG; QD; PO
     Route: 048
     Dates: start: 20100510, end: 20100616
  4. MIRTAZAPINE [Suspect]
     Indication: DEPRESSION
     Dosage: 15 MG; QD; PO, 15 MG; QD; PO, 30 MG; QD; PO, 15 MG; QD; PO
     Route: 048
     Dates: start: 20091023
  5. HALCION [Suspect]
     Indication: INSOMNIA
     Dosage: 0.5 MG; QD; PO
     Route: 048
     Dates: start: 20091002
  6. HALCION [Suspect]
     Indication: INSOMNIA
     Dosage: 0.5 MG; QD; PO
     Route: 048
     Dates: start: 20091023
  7. HALCION [Suspect]
     Indication: INSOMNIA
     Dosage: 0.5 MG; QD; PO
     Route: 048
     Dates: start: 20091030
  8. HALCION [Suspect]
     Indication: INSOMNIA
     Dosage: 0.5 MG; QD; PO
     Route: 048
     Dates: start: 20100105
  9. HALCION [Suspect]
     Indication: INSOMNIA
     Dosage: 0.5 MG; QD; PO
     Route: 048
     Dates: start: 20100510
  10. HALCION [Suspect]
     Indication: INSOMNIA
     Dosage: 0.5 MG; QD; PO
     Route: 048
     Dates: start: 20100617
  11. HALCION [Suspect]
     Indication: INSOMNIA
     Dosage: 0.5 MG; QD; PO
     Route: 048
     Dates: start: 20100720
  12. HALCION [Suspect]
     Indication: INSOMNIA
     Dosage: 0.5 MG; QD; PO
     Route: 048
     Dates: start: 20100802
  13. TRYPTANOL (AMITRIPTYLINE) [Suspect]
     Indication: PRODUCT USED FOR UNKNOWN INDICATION
     Dosage: QD; UNK, 10 MG; QD; UNK
     Dates: start: 20091002
  14. TRYPTANOL (AMITRIPTYLINE) [Suspect]
     Indication: PRODUCT USED FOR UNKNOWN INDICATION
     Dosage: QD; UNK, 10 MG; QD; UNK
     Dates: start: 20091023

REACTIONS (7)
  - AMNESIA [None]
  - ANXIETY [None]
  - DRUG INTERACTION [None]
  - FEELING ABNORMAL [None]
  - IRRITABILITY [None]
  - MALAISE [None]
  - SLEEP DISORDER [None]
